FAERS Safety Report 8482690-X (Version None)
Quarter: 2012Q3

REPORT INFORMATION
  Report Type: 
  Country: None (occurrence: None)
  Receive Date: 20120702
  Receipt Date: 20120628
  Transmission Date: 20120928
  Serious: Yes (Hospitalization, Disabling)
  Sender: FDA-Public Use
  Company Number: US-MERCK-1203USA02809

PATIENT
  Age: 65 Year
  Sex: Female

DRUGS (2)
  1. ACTONEL [Suspect]
     Route: 048
  2. FOSAMAX [Suspect]
     Indication: OSTEOPENIA
     Route: 048
     Dates: start: 19970301

REACTIONS (15)
  - SPINAL COMPRESSION FRACTURE [None]
  - HYPERGLYCAEMIA [None]
  - DIABETES MELLITUS [None]
  - FEMUR FRACTURE [None]
  - BLOOD CHOLESTEROL INCREASED [None]
  - SPINAL OSTEOARTHRITIS [None]
  - DENTAL CARIES [None]
  - HYPERTENSION [None]
  - DUODENITIS HAEMORRHAGIC [None]
  - LUMBAR VERTEBRAL FRACTURE [None]
  - ANAEMIA [None]
  - SYNCOPE [None]
  - BLOOD PRESSURE INCREASED [None]
  - OSTEOPOROSIS [None]
  - GASTROINTESTINAL MOTILITY DISORDER [None]
